FAERS Safety Report 8264228-5 (Version None)
Quarter: 2012Q2

REPORT INFORMATION
  Report Type: 
  Country: None (occurrence: None)
  Receive Date: 20120406
  Receipt Date: 20120328
  Transmission Date: 20120825
  Serious: Yes (Other)
  Sender: FDA-Public Use
  Company Number: AR-JNJFOC-20120400622

PATIENT
  Sex: Female

DRUGS (2)
  1. REMICADE [Suspect]
     Indication: RHEUMATOID ARTHRITIS
     Dosage: 2 DOSAGES
     Route: 042
     Dates: start: 20101010
  2. REMICADE [Suspect]
     Route: 042
     Dates: start: 20120102

REACTIONS (1)
  - MYOCARDIAL INFARCTION [None]
